FAERS Safety Report 15452858 (Version 2)
Quarter: 2018Q4

REPORT INFORMATION
  Report Type: Spontaneous
  Country: IT (occurrence: IT)
  Receive Date: 20181001
  Receipt Date: 20181009
  Transmission Date: 20190204
  Serious: Yes (Hospitalization, Other)
  Sender: FDA-Public Use
  Company Number: IT-PFIZER INC-2018393797

PATIENT
  Age: 78 Year
  Sex: Female
  Weight: 50 kg

DRUGS (7)
  1. CREON [Concomitant]
     Active Substance: PANCRELIPASE AMYLASE\PANCRELIPASE LIPASE\PANCRELIPASE PROTEASE
     Dosage: UNK
  2. LASIX [Concomitant]
     Active Substance: FUROSEMIDE
     Dosage: 25 MG, UNK
  3. TAREG [Concomitant]
     Active Substance: VALSARTAN
     Dosage: UNK
  4. CORDARONE [Suspect]
     Active Substance: AMIODARONE HYDROCHLORIDE
     Indication: ARRHYTHMIA
     Dosage: 1 DF, CYCLIC
     Route: 048
  5. COUMADIN [Suspect]
     Active Substance: WARFARIN SODIUM
     Indication: THROMBOSIS PROPHYLAXIS
     Dosage: 1 DF, 1X/DAY
     Route: 048
  6. OXYBUTYNIN HYDROCHLORIDE [Concomitant]
     Active Substance: OXYBUTYNIN CHLORIDE
     Dosage: UNK
  7. TARGIN [Concomitant]
     Active Substance: NALOXONE HYDROCHLORIDE\OXYCODONE HYDROCHLORIDE
     Dosage: UNK

REACTIONS (7)
  - International normalised ratio abnormal [Recovered/Resolved]
  - Sinus bradycardia [Recovered/Resolved]
  - Melaena [Recovered/Resolved]
  - Oxygen saturation decreased [Recovered/Resolved]
  - Hypotension [Recovered/Resolved]
  - Overdose [Unknown]
  - Haemorrhagic anaemia [Recovered/Resolved]

NARRATIVE: CASE EVENT DATE: 20180315
